FAERS Safety Report 21202485 (Version 1)
Quarter: 2022Q3

REPORT INFORMATION
  Report Type: Spontaneous
  Country: US (occurrence: US)
  Receive Date: 20220811
  Receipt Date: 20220811
  Transmission Date: 20221026
  Serious: No
  Sender: FDA-Public Use
  Company Number: US-OTSUKA-2022_034639

PATIENT
  Age: 36 Year
  Sex: Female

DRUGS (4)
  1. REXULTI [Suspect]
     Active Substance: BREXPIPRAZOLE
     Indication: Product used for unknown indication
     Dosage: 1 MG, QD
     Route: 065
  2. HERBALS\MITRAGYNINE [Concomitant]
     Active Substance: HERBALS\MITRAGYNINE
     Indication: Product used for unknown indication
     Dosage: 1000 MG, TID
     Route: 065
  3. CLONIDINE [Concomitant]
     Active Substance: CLONIDINE
     Indication: Product used for unknown indication
     Dosage: UNK
     Route: 065
  4. GABAPENTIN [Concomitant]
     Active Substance: GABAPENTIN
     Indication: Product used for unknown indication
     Dosage: 4-5 TIMES DAILY
     Route: 065

REACTIONS (5)
  - Pyrexia [Unknown]
  - Platelet count decreased [Not Recovered/Not Resolved]
  - Neutrophil count decreased [Unknown]
  - White blood cell count decreased [Not Recovered/Not Resolved]
  - Asthenia [Unknown]

NARRATIVE: CASE EVENT DATE: 20220601
